FAERS Safety Report 4320377-5 (Version None)
Quarter: 2004Q1

REPORT INFORMATION
  Report Type: 
  Country: None (occurrence: None)
  Receive Date: 20040317
  Receipt Date: 20040308
  Transmission Date: 20041129
  Serious: Yes (Hospitalization)
  Sender: FDA-Public Use
  Company Number: 2004-03-0514

PATIENT
  Age: 56 Year
  Sex: Female

DRUGS (3)
  1. BETAMETHASONE [Suspect]
     Indication: VOGT-KOYANAGI-HARADA SYNDROME
     Dosage: SEE IMAGE
     Route: 042
  2. BETAMETHASONE [Suspect]
     Indication: VOGT-KOYANAGI-HARADA SYNDROME
     Dosage: SEE IMAGE
     Route: 042
  3. BETAMETHASONE [Suspect]
     Indication: VOGT-KOYANAGI-HARADA SYNDROME
     Dosage: SEE IMAGE
     Route: 042

REACTIONS (2)
  - PANCREATITIS NECROTISING [None]
  - PERITONITIS [None]
